FAERS Safety Report 24894932 (Version 5)
Quarter: 2025Q3

REPORT INFORMATION
  Report Type: Spontaneous
  Country: US (occurrence: US)
  Receive Date: 20250128
  Receipt Date: 20250806
  Transmission Date: 20251021
  Serious: Yes (Hospitalization)
  Sender: PFIZER
  Company Number: US-PFIZER INC-202500019375

PATIENT
  Age: 67 Year
  Sex: Female

DRUGS (1)
  1. TUKYSA [Suspect]
     Active Substance: TUCATINIB
     Dosage: 150MG; 2 TABLETS TWICE DAILY
     Route: 048

REACTIONS (2)
  - Illness [Unknown]
  - Malaise [Unknown]
